FAERS Safety Report 6161174-8 (Version None)
Quarter: 2009Q2

REPORT INFORMATION
  Report Type: 
  Country: None (occurrence: None)
  Receive Date: 20090421
  Receipt Date: 20090417
  Transmission Date: 20091009
  Serious: Yes (Death)
  Sender: FDA-Public Use
  Company Number: JP-JNJFOC-20090404656

PATIENT

DRUGS (2)
  1. RISPERDAL [Suspect]
     Indication: RESTLESSNESS
     Dosage: 0.5CC WAS ADMINISTERED 4 HOURS BEFORE DEATH AND ONE HOUR LATER REMAINING 0.5CC WAS ADMINISTERED.
     Route: 048
  2. ROHYPNOL [Concomitant]
     Indication: RESTLESSNESS
     Route: 065

REACTIONS (3)
  - COMA [None]
  - DEATH [None]
  - DRUG INEFFECTIVE [None]
